FAERS Safety Report 15048610 (Version 2)
Quarter: 2018Q3

REPORT INFORMATION
  Report Type: Report from Study
  Country: CA (occurrence: CA)
  Receive Date: 20180622
  Receipt Date: 20180704
  Transmission Date: 20181010
  Serious: Yes (Other)
  Sender: FDA-Public Use
  Company Number: CA-AMGEN-CANSL2018082681

PATIENT
  Age: 73 Year
  Sex: Female

DRUGS (1)
  1. ENBREL [Suspect]
     Active Substance: ETANERCEPT
     Indication: PSORIATIC ARTHROPATHY
     Dosage: 25 MG, 2 TIMES/WK
     Route: 065
     Dates: start: 20050512

REACTIONS (1)
  - Bone cancer [Unknown]
